FAERS Safety Report 15808793 (Version 1)
Quarter: 2019Q1

REPORT INFORMATION
  Report Type: Spontaneous
  Country: US (occurrence: US)
  Receive Date: 20190110
  Receipt Date: 20190110
  Transmission Date: 20190417
  Serious: No
  Sender: FDA-Public Use
  Company Number: US-NOVOPROD-633811

PATIENT
  Age: 12 Year
  Sex: Female

DRUGS (1)
  1. FIASP [Suspect]
     Active Substance: INSULIN ASPART
     Indication: CYSTIC FIBROSIS RELATED DIABETES
     Dosage: 1 UNIT: 25G
     Route: 058
     Dates: start: 20181102, end: 20181112

REACTIONS (1)
  - Postprandial hypoglycaemia [Unknown]

NARRATIVE: CASE EVENT DATE: 201811
